FAERS Safety Report 8174516-9 (Version None)
Quarter: 2012Q1

REPORT INFORMATION
  Report Type: 
  Country: None (occurrence: None)
  Receive Date: 20120229
  Receipt Date: 20120221
  Transmission Date: 20120608
  Serious: Yes (Hospitalization)
  Sender: FDA-Public Use
  Company Number: IT-ASTRAZENECA-2012SE11945

PATIENT
  Age: 31002 Day
  Sex: Male

DRUGS (7)
  1. MEMANTINE HYDROCHLORIDE [Concomitant]
     Route: 048
  2. PEPTAZOL [Concomitant]
  3. AGGRENOX [Concomitant]
     Route: 048
  4. LASIX [Concomitant]
     Route: 048
  5. SEROQUEL [Suspect]
     Indication: ABNORMAL BEHAVIOUR
     Dosage: 250 MG OD (50+50+150 MG)
     Route: 048
     Dates: start: 20111026, end: 20120119
  6. SINEMET [Concomitant]
     Dosage: 25/100 MG HALF TABLET BID
     Route: 048
  7. LOSAPREX [Concomitant]
     Route: 048

REACTIONS (2)
  - PANCYTOPENIA [None]
  - BONE MARROW FAILURE [None]
